FAERS Safety Report 16853157 (Version 3)
Quarter: 2020Q3

REPORT INFORMATION
  Report Type: Report from Study
  Country: BR (occurrence: BR)
  Receive Date: 20190925
  Receipt Date: 20200827
  Transmission Date: 20201102
  Serious: Yes (Other)
  Sender: FDA-Public Use
  Company Number: PHHY2019BR215977

PATIENT
  Sex: Female

DRUGS (7)
  1. TIMOLOL. [Suspect]
     Active Substance: TIMOLOL
     Indication: GLAUCOMA
     Dosage: UNK
     Route: 065
  2. SIMBRINZA [Suspect]
     Active Substance: BRIMONIDINE TARTRATE\BRINZOLAMIDE
     Indication: GLAUCOMA
     Dosage: UNK
     Route: 065
  3. TRAVOPROST. [Suspect]
     Active Substance: TRAVOPROST
     Indication: GLAUCOMA
     Dosage: UNK (5 OR 6 YEARS AGO)
     Route: 065
  4. TRAVATAN [Suspect]
     Active Substance: TRAVOPROST
     Dosage: UNK (START DATE AROUND 8 YEARS AGO AND STOP DATE AROUND 2 YEARS AGO)
     Route: 065
  5. TRAVATAN [Suspect]
     Active Substance: TRAVOPROST
     Indication: GLAUCOMA
     Dosage: UNK UNK, BID (5 OR 6 YEARS AGO)
     Route: 065
  6. TRAVOPROST. [Suspect]
     Active Substance: TRAVOPROST
     Dosage: UNK (5 OR 6 MONTHS AGO)
     Route: 065
  7. LUCENTIS [Suspect]
     Active Substance: RANIBIZUMAB
     Indication: GLAUCOMA
     Dosage: UNK
     Route: 065

REACTIONS (12)
  - Drug hypersensitivity [Unknown]
  - Retinal degeneration [Not Recovered/Not Resolved]
  - Drug ineffective [Unknown]
  - Vision blurred [Unknown]
  - Ocular hyperaemia [Recovered/Resolved]
  - Malaise [Unknown]
  - Eye irritation [Unknown]
  - Eye pruritus [Unknown]
  - Glassy eyes [Recovered/Resolved]
  - Abnormal sensation in eye [Unknown]
  - Drug intolerance [Unknown]
  - Visual impairment [Unknown]
